FAERS Safety Report 10931155 (Version 1)
Quarter: 2015Q1

REPORT INFORMATION
  Report Type: Spontaneous
  Country: MY (occurrence: None)
  Receive Date: 20150317
  Receipt Date: 20150317
  Transmission Date: 20150721
  Serious: Yes (Life-Threatening)
  Sender: FDA-Public Use
  Company Number: FK201501172

PATIENT
  Sex: Female

DRUGS (1)
  1. MORPHINE (MANUFACTURER UNKNOWN) (MORPHINE) (MORPHINE) [Suspect]
     Active Substance: MORPHINE
     Indication: EPIDURAL ANALGESIA
     Route: 008

REACTIONS (3)
  - Overdose [None]
  - Respiratory depression [None]
  - Wrong drug administered [None]
